FAERS Safety Report 6356328-1 (Version None)
Quarter: 2009Q3

REPORT INFORMATION
  Report Type: 
  Country: None (occurrence: None)
  Receive Date: 20090915
  Receipt Date: 20090902
  Transmission Date: 20100115
  Serious: Yes (Other)
  Sender: FDA-Public Use
  Company Number: GB-PFIZER INC-2009244516

PATIENT
  Age: 59 Year

DRUGS (2)
  1. CHAMPIX [Suspect]
     Indication: SMOKING CESSATION THERAPY
     Dosage: 1 MG, 2X/DAY
     Route: 048
     Dates: start: 20090708, end: 20090723
  2. RAMIPRIL [Concomitant]
     Dosage: 5 MG, 1X/DAY
     Route: 048

REACTIONS (9)
  - CHILLS [None]
  - COLD SWEAT [None]
  - EYE SWELLING [None]
  - INFLUENZA LIKE ILLNESS [None]
  - MYALGIA [None]
  - NASAL OEDEMA [None]
  - PAIN [None]
  - PILOERECTION [None]
  - SWELLING FACE [None]
